FAERS Safety Report 5963779-3 (Version None)
Quarter: 2008Q4

REPORT INFORMATION
  Report Type: 
  Country: None (occurrence: None)
  Receive Date: 20081120
  Receipt Date: 20080703
  Transmission Date: 20090506
  Serious: Yes (Death)
  Sender: FDA-Public Use
  Company Number: 2008PL000181

PATIENT
  Age: 44 Year
  Sex: Female

DRUGS (4)
  1. LABETALOL HYDROCHLORIDE [Suspect]
     Indication: DRUG USE FOR UNKNOWN INDICATION
     Dosage: UNK; PO
     Route: 048
  2. ETHANOL [Concomitant]
  3. MEPROBAMATE [Concomitant]
  4. NORDAZEPAM [Concomitant]

REACTIONS (7)
  - BLOOD ALCOHOL INCREASED [None]
  - DRUG LEVEL INCREASED [None]
  - DRUG TOXICITY [None]
  - HEPATIC STEATOSIS [None]
  - HYPOTENSION [None]
  - PULMONARY OEDEMA [None]
  - TUBULOINTERSTITIAL NEPHRITIS [None]
